FAERS Safety Report 6418634-1 (Version None)
Quarter: 2009Q4

REPORT INFORMATION
  Report Type: 
  Country: None (occurrence: None)
  Receive Date: 20091021
  Receipt Date: 20090730
  Transmission Date: 20100525
  Serious: No
  Sender: FDA-Public Use
  Company Number: ALL1-2009-02112

PATIENT
  Age: 7 Year
  Sex: Female
  Weight: 22.7 kg

DRUGS (10)
  1. VYVANSE [Suspect]
     Indication: ATTENTION DEFICIT/HYPERACTIVITY DISORDER
     Dosage: 30 MG, 1X/DAY:QD, ORAL
     Route: 048
     Dates: start: 20090601, end: 20090701
  2. TRAZODONE (TRAZODNE) TABLET [Concomitant]
  3. ABILIFY [Concomitant]
  4. SINGULAIR (MONTELUKAST) CHEWABLE TABLET [Concomitant]
  5. FLOVENT (FLUTICASONE PROPIONATE) INHALATION GAS [Concomitant]
  6. XOPENEX HFA (LEVOSALBUTAMOL TARTRATE) INHALATION GAS [Concomitant]
  7. NASONEX (MOMETASONE FUROATE) NASAL SPRAY [Concomitant]
  8. CLARITIN (GLICLAZIDE) [Concomitant]
  9. ACYCLOVIR [Concomitant]
  10. XOPENEX [Concomitant]

REACTIONS (1)
  - NEGATIVISM [None]
